FAERS Safety Report 15292781 (Version 2)
Quarter: 2018Q3

REPORT INFORMATION
  Report Type: Report from Study
  Country: US (occurrence: US)
  Receive Date: 20180819
  Receipt Date: 20180827
  Transmission Date: 20181010
  Serious: Yes (Hospitalization, Other)
  Sender: FDA-Public Use
  Company Number: US-SHIRE-US201831578

PATIENT
  Sex: Female

DRUGS (2)
  1. GATTEX [Suspect]
     Active Substance: TEDUGLUTIDE\WATER
     Dosage: 0.13 ML, 1X/DAY:QD
     Route: 058
  2. GATTEX [Suspect]
     Active Substance: TEDUGLUTIDE\WATER
     Indication: SHORT-BOWEL SYNDROME
     Dosage: 0.26 IU, 1X/DAY:QD
     Route: 065

REACTIONS (6)
  - Weight increased [Recovering/Resolving]
  - Hypoaesthesia [Not Recovered/Not Resolved]
  - Pericardial effusion [Not Recovered/Not Resolved]
  - Dehydration [Recovering/Resolving]
  - Pleural effusion [Not Recovered/Not Resolved]
  - Stoma complication [Not Recovered/Not Resolved]
